FAERS Safety Report 5266357-7 (Version None)
Quarter: 2007Q1

REPORT INFORMATION
  Report Type: 
  Country: None (occurrence: None)
  Receive Date: 20070315
  Receipt Date: 20070307
  Transmission Date: 20070707
  Serious: Yes (Other)
  Sender: FDA-Public Use
  Company Number: US-ROCHE-483406

PATIENT
  Age: 55 Year
  Sex: Female

DRUGS (4)
  1. BONIVA [Suspect]
     Indication: OSTEOPOROSIS
     Route: 048
     Dates: start: 20070206, end: 20070206
  2. CYMBALTA [Concomitant]
  3. PRILOSEC [Concomitant]
  4. PREDNISONE [Concomitant]

REACTIONS (12)
  - BACK PAIN [None]
  - CHEST PAIN [None]
  - DYSPHAGIA [None]
  - DYSPNOEA [None]
  - GLOSSITIS [None]
  - HYPOAESTHESIA [None]
  - LIP SWELLING [None]
  - MOUTH HAEMORRHAGE [None]
  - MOVEMENT DISORDER [None]
  - PAIN IN EXTREMITY [None]
  - PHARYNGEAL OEDEMA [None]
  - TREMOR [None]
